FAERS Safety Report 7508510-5 (Version None)
Quarter: 2011Q2

REPORT INFORMATION
  Report Type: 
  Country: None (occurrence: None)
  Receive Date: 20110527
  Receipt Date: 20110525
  Transmission Date: 20111010
  Serious: Yes (Life-Threatening)
  Sender: FDA-Public Use
  Company Number: JP-PFIZER INC-2011113323

PATIENT
  Age: 69 Year
  Sex: Female

DRUGS (4)
  1. BUTIKINON [Concomitant]
     Indication: PHARYNGITIS
     Dosage: 300 MG/DAY
     Route: 048
     Dates: start: 20110516, end: 20110516
  2. ZITHROMAX [Suspect]
     Indication: PHARYNGITIS
     Dosage: 2 G, SINGLE
     Route: 048
     Dates: start: 20110516, end: 20110516
  3. AZULENE SULFONATE SODIUM/L-GLUTAMINE [Concomitant]
     Indication: PHARYNGITIS
     Dosage: UNK
     Dates: start: 20110516
  4. HUSCODE [Concomitant]
     Indication: PHARYNGITIS
     Dosage: UNK
     Route: 048
     Dates: start: 20110516, end: 20110516

REACTIONS (1)
  - SHOCK [None]
